FAERS Safety Report 9386747 (Version 1)
Quarter: 2013Q3

REPORT INFORMATION
  Report Type: Spontaneous
  Country: JP (occurrence: None)
  Receive Date: 20130702
  Receipt Date: 20130702
  Transmission Date: 20140515
  Serious: Yes (Other)
  Sender: FDA-Public Use
  Company Number: ABR_00990_2013

PATIENT
  Age: 81 Year
  Sex: Male

DRUGS (2)
  1. ERYTHROCIN LACTOBIONATE [Suspect]
     Indication: BRAIN ABSCESS
     Dosage: [1 VIAL DISSOLVED W/ 10ML WATER FOR INJECTION,DILUTED WITH 100 ML SALINE, ADMINISTERED OVER 2 HOURS
     Route: 041
     Dates: start: 20130615, end: 20130621
  2. MEROPENEM TRIHYDRATE [Concomitant]

REACTIONS (1)
  - Injection site vasculitis [None]
